FAERS Safety Report 4916938-2 (Version None)
Quarter: 2006Q1

REPORT INFORMATION
  Report Type: 
  Country: None (occurrence: None)
  Receive Date: 20060221
  Receipt Date: 20060210
  Transmission Date: 20060701
  Serious: Yes (Other)
  Sender: FDA-Public Use
  Company Number: PHBS2006JP02354

PATIENT
  Age: 60 Year
  Sex: Female

DRUGS (5)
  1. LAMISIL [Suspect]
     Indication: NAIL TINEA
     Dosage: 125 MG, QD
     Route: 048
     Dates: start: 20051001, end: 20060111
  2. NORVASC [Concomitant]
     Dosage: 5 MG/D
     Route: 048
     Dates: start: 20020101
  3. MEVALOTIN [Concomitant]
     Dosage: 10 MG/D
     Route: 048
     Dates: start: 20010101
  4. FAMOTIDINE [Concomitant]
     Dosage: 20 MG/D
     Route: 048
     Dates: start: 20050101
  5. ARIMIDEX [Concomitant]
     Dosage: 1 MG/D
     Route: 048

REACTIONS (3)
  - ABDOMINAL PAIN UPPER [None]
  - GASTRIC HAEMORRHAGE [None]
  - GASTRIC MUCOSAL LESION [None]
